FAERS Safety Report 5912531-3 (Version None)
Quarter: 2008Q4

REPORT INFORMATION
  Report Type: 
  Country: None (occurrence: None)
  Receive Date: 20081006
  Receipt Date: 20080918
  Transmission Date: 20090506
  Serious: Yes (Death, Congenital Anomaly, Other)
  Sender: FDA-Public Use
  Company Number: DSA_30741_2007

PATIENT
  Weight: 0.1 kg

DRUGS (3)
  1. ENALAPRIL MALEATE [Suspect]
     Indication: HYPERTENSION
     Dosage: (10 MG QD TRANSPLACENTAL)
     Route: 064
     Dates: start: 20070201, end: 20070401
  2. LABETALOL HYDROCHLORIDE [Concomitant]
  3. METHYLDOPA [Concomitant]

REACTIONS (9)
  - ABORTION INDUCED [None]
  - CARDIOMEGALY [None]
  - DYSMORPHISM [None]
  - FOETAL GROWTH RETARDATION [None]
  - MATERNAL DRUGS AFFECTING FOETUS [None]
  - MULTIPLE CONGENITAL ABNORMALITIES [None]
  - OLIGOHYDRAMNIOS [None]
  - PLACENTAL DISORDER [None]
  - PULMONARY MALFORMATION [None]
